FAERS Safety Report 23559548 (Version 6)
Quarter: 2025Q1

REPORT INFORMATION
  Report Type: Report from Study
  Country: US (occurrence: US)
  Receive Date: 20240223
  Receipt Date: 20250129
  Transmission Date: 20250409
  Serious: Yes (Hospitalization, Other)
  Sender: PUMA
  Company Number: US-PUMA BIOTECHNOLOGY, LTD.-2024-PUM-US000263

PATIENT

DRUGS (4)
  1. NERLYNX [Suspect]
     Active Substance: NERATINIB
     Indication: Breast cancer female
     Dosage: 240 MG, DAILY
     Route: 048
     Dates: start: 20240201
  2. NERLYNX [Suspect]
     Active Substance: NERATINIB
     Dosage: 80 MG, DAILY FOR 1 MONTH
     Route: 048
  3. NERLYNX [Suspect]
     Active Substance: NERATINIB
     Dosage: 120 MG, DAILY FOR 1 MONTH
     Route: 048
  4. NERLYNX [Suspect]
     Active Substance: NERATINIB
     Dosage: 160 MG, DAILY FOR 1 MONTH
     Route: 048

REACTIONS (8)
  - Malaise [Recovering/Resolving]
  - Dehydration [Not Recovered/Not Resolved]
  - Hypotension [Recovering/Resolving]
  - Nausea [Recovering/Resolving]
  - Vomiting [Recovering/Resolving]
  - Diarrhoea [Recovering/Resolving]
  - Acute kidney injury [Unknown]
  - Sciatica [Unknown]
